FAERS Safety Report 11142350 (Version 1)
Quarter: 2015Q2

REPORT INFORMATION
  Report Type: Spontaneous
  Country: US (occurrence: US)
  Receive Date: 20150527
  Receipt Date: 20150527
  Transmission Date: 20150821
  Serious: No
  Sender: FDA-Public Use
  Company Number: US-SHIRE-US201504536

PATIENT
  Sex: Female
  Weight: 63.49 kg

DRUGS (14)
  1. PENTASA [Suspect]
     Active Substance: MESALAMINE
     Indication: CROHN^S DISEASE
     Dosage: 1000 MG, 3X/DAY:TID
     Route: 048
     Dates: start: 2015
  2. PENTASA [Suspect]
     Active Substance: MESALAMINE
     Dosage: 1000 MG, 4X/DAY:QID
     Route: 048
     Dates: start: 2004, end: 2015
  3. SPIRIVA [Concomitant]
     Active Substance: TIOTROPIUM BROMIDE MONOHYDRATE
     Indication: RESPIRATORY DISORDER
     Dosage: 1 DF, 1X/DAY:QD
     Route: 055
     Dates: start: 2011
  4. VITAMIN B12 [Concomitant]
     Active Substance: CYANOCOBALAMIN
     Indication: BONE DISORDER
     Dosage: OTHER, INJECTION, EVERY 3 MONTHS
     Route: 065
  5. TYLENOL EXTRA STRENGTH [Concomitant]
     Active Substance: ACETAMINOPHEN
     Indication: PAIN
     Dosage: 500 MG, AS REQ^D, AS NEEDED
     Route: 048
  6. AZATHIOPRINE. [Concomitant]
     Active Substance: AZATHIOPRINE
     Indication: CROHN^S DISEASE
     Dosage: 50 MG, 2X/DAY:BID
     Route: 065
     Dates: start: 2004
  7. LYRICA [Concomitant]
     Active Substance: PREGABALIN
     Indication: PAIN
     Dosage: 225 MG, 1X/DAY:QD
     Route: 065
     Dates: start: 2011
  8. XANAX [Concomitant]
     Active Substance: ALPRAZOLAM
     Indication: ANXIETY DISORDER
     Dosage: 0.5 MG, 2X/DAY:BID
     Route: 048
     Dates: start: 2004
  9. BRIMONIDINE [Concomitant]
     Active Substance: BRIMONIDINE\BRIMONIDINE TARTRATE
     Indication: PHOTOPHOBIA
     Dosage: 1 GTT, UNKNOWN, 1 GTT EACH EYE
     Route: 047
     Dates: start: 2005
  10. FLONASE                            /00908302/ [Concomitant]
     Indication: NASAL CONGESTION
     Dosage: 2 DF, UNKNOWN, 2 SPRAYS EACH NOSTRIL
     Route: 045
  11. TORADOL [Concomitant]
     Active Substance: KETOROLAC TROMETHAMINE
     Indication: PRODUCT USED FOR UNKNOWN INDICATION
     Dosage: UNK, OTHER, INJECTION, EVERY 3 MONTHS
     Route: 065
  12. FENOFIBRATE. [Concomitant]
     Active Substance: FENOFIBRATE
     Indication: BLOOD TRIGLYCERIDES ABNORMAL
     Dosage: 150 MG, 1X/DAY:QD
     Route: 048
     Dates: start: 2004
  13. ARISTOCORT                         /00031901/ [Concomitant]
     Indication: BONE DISORDER
     Dosage: OTHER, INJECTION, EVERY 3 MONTHS
     Route: 065
  14. IRBESARTAN AND HYDROCHLOROTHIAZIDE [Concomitant]
     Active Substance: HYDROCHLOROTHIAZIDE\IRBESARTAN
     Indication: HYPERTENSION
     Dosage: 150-12.5 MG, 2X/DAY:BID
     Route: 048
     Dates: start: 2011

REACTIONS (4)
  - Product use issue [Not Recovered/Not Resolved]
  - Drug ineffective [Recovered/Resolved]
  - Herpes zoster [Recovered/Resolved]
  - Incorrect dose administered [Not Recovered/Not Resolved]

NARRATIVE: CASE EVENT DATE: 2004
